FAERS Safety Report 9922804 (Version 2)
Quarter: 2014Q1

REPORT INFORMATION
  Report Type: Spontaneous
  Country: DE (occurrence: DE)
  Receive Date: 20140225
  Receipt Date: 20140225
  Transmission Date: 20141002
  Serious: Yes (Hospitalization)
  Sender: FDA-Public Use
  Company Number: DE-TEVA-403938GER

PATIENT
  Age: 33 Year
  Sex: Female

DRUGS (5)
  1. AZILECT [Suspect]
     Indication: PARKINSON^S DISEASE
     Dates: end: 2013
  2. AZILECT [Suspect]
     Dosage: 1 MILLIGRAM DAILY;
     Route: 048
     Dates: start: 201305
  3. REQUIP [Suspect]
     Indication: PARKINSON^S DISEASE
     Dosage: 8 MILLIGRAM DAILY;
     Route: 048
  4. MADOPAR [Suspect]
     Indication: PARKINSON^S DISEASE
     Route: 048
  5. MADOPAR [Suspect]
     Dosage: 3 TABLET DAILY;

REACTIONS (5)
  - Cervical incompetence [Unknown]
  - Premature labour [Recovered/Resolved]
  - Vaginal disorder [Unknown]
  - Dyskinesia [Unknown]
  - Normal newborn [Unknown]
